FAERS Safety Report 11253727 (Version 1)
Quarter: 2015Q3

REPORT INFORMATION
  Report Type: Spontaneous
  Country: US (occurrence: None)
  Receive Date: 20150707
  Receipt Date: 20150707
  Transmission Date: 20151125
  Serious: Yes (Disabling, Other)
  Sender: FDA-Public Use
  Company Number: None

PATIENT
  Age: 76 Year
  Sex: Female
  Weight: 79.38 kg

DRUGS (7)
  1. LEVOFLOXACIN 500 MG ZYDUS [Suspect]
     Active Substance: LEVOFLOXACIN
     Indication: PNEUMONIA
     Dosage: TAKEN BY MOUTH?1 PILL
     Dates: start: 20150307, end: 20150313
  2. MONTELUKAST [Concomitant]
     Active Substance: MONTELUKAST SODIUM
  3. BAYER LOW DOSE [Concomitant]
     Active Substance: ASPIRIN
  4. CENTRUM SILVER VITAMINS [Concomitant]
  5. CLECOX [Concomitant]
  6. FISH OIL [Concomitant]
     Active Substance: FISH OIL
  7. ATORVASTATIN [Concomitant]
     Active Substance: ATORVASTATIN

REACTIONS (2)
  - Pain in extremity [None]
  - Rotator cuff syndrome [None]

NARRATIVE: CASE EVENT DATE: 20150311
